FAERS Safety Report 8469156-8 (Version None)
Quarter: 2012Q2

REPORT INFORMATION
  Report Type: 
  Country: None (occurrence: None)
  Receive Date: 20120626
  Receipt Date: 20110517
  Transmission Date: 20120825
  Serious: Yes (Disabling)
  Sender: FDA-Public Use
  Company Number: US-MUTUAL PHARMACEUTICAL COMPANY, INC.-MTCA20110881

PATIENT
  Sex: Male

DRUGS (2)
  1. METOCLOPRAMIDE [Suspect]
     Indication: PRODUCT USED FOR UNKNOWN INDICATION
     Route: 048
     Dates: start: 20010101, end: 20021001
  2. METOCLOPRAMIDE [Suspect]
     Route: 048
     Dates: start: 20030601, end: 20090201

REACTIONS (4)
  - TREMOR [None]
  - PARKINSONISM [None]
  - TARDIVE DYSKINESIA [None]
  - ASTHENIA [None]
